FAERS Safety Report 23774803 (Version 1)
Quarter: 2024Q2

REPORT INFORMATION
  Report Type: Spontaneous
  Country: US (occurrence: US)
  Receive Date: 20240423
  Receipt Date: 20240423
  Transmission Date: 20240715
  Serious: No
  Sender: FDA-Public Use
  Company Number: US-PFIZER INC-PV202400052998

PATIENT
  Age: 81 Year
  Sex: Female

DRUGS (12)
  1. IBRANCE [Suspect]
     Active Substance: PALBOCICLIB
     Indication: Breast cancer female
     Dosage: 125 MG, CYCLIC, ONE DAILY FOR 21 DAYS OFF 7 DAYS
     Route: 048
     Dates: start: 20220505
  2. FUROSEMIDE [Concomitant]
     Active Substance: FUROSEMIDE
  3. VITAMIN D3 [Concomitant]
     Active Substance: CHOLECALCIFEROL
  4. PROCHLORPERAZINE [Concomitant]
     Active Substance: PROCHLORPERAZINE
  5. TAMOXIFEN [Concomitant]
     Active Substance: TAMOXIFEN
  6. OZEMPIC [Concomitant]
     Active Substance: SEMAGLUTIDE
     Dosage: 1 MG PER DOSE (1X4MG PEN)
  7. ENTRESTO [Concomitant]
     Active Substance: SACUBITRIL\VALSARTAN
  8. JARDIANCE [Concomitant]
     Active Substance: EMPAGLIFLOZIN
  9. ROSUVASTATIN [Concomitant]
     Active Substance: ROSUVASTATIN
  10. CINNAMON [Concomitant]
     Active Substance: CINNAMON
  11. ELIQUIS [Concomitant]
     Active Substance: APIXABAN
  12. METFORMIN HYDROCHLORIDE [Concomitant]
     Active Substance: METFORMIN HYDROCHLORIDE

REACTIONS (1)
  - Neutrophil count decreased [Unknown]
